FAERS Safety Report 21496209 (Version 1)
Quarter: 2022Q4

REPORT INFORMATION
  Report Type: Report from Study
  Country: US (occurrence: US)
  Receive Date: 20221022
  Receipt Date: 20221022
  Transmission Date: 20230113
  Serious: No
  Sender: FDA-Public Use
  Company Number: US-ABBVIE-4157781

PATIENT
  Sex: Female

DRUGS (3)
  1. SKYRIZI [Suspect]
     Active Substance: RISANKIZUMAB-RZAA
     Indication: Psoriasis
     Route: 030
  2. covid-19 vaccine [Concomitant]
     Indication: COVID-19 immunisation
     Dosage: COVID VACCINE DOSE
     Route: 030
  3. covid-19 vaccine [Concomitant]
     Indication: COVID-19 immunisation
     Dosage: COVID BOOSTER VACCINE DOSE
     Route: 030

REACTIONS (1)
  - Paraesthesia [Not Recovered/Not Resolved]
